FAERS Safety Report 7551813-9 (Version None)
Quarter: 2011Q2

REPORT INFORMATION
  Report Type: 
  Country: None (occurrence: None)
  Receive Date: 20110616
  Receipt Date: 20110607
  Transmission Date: 20111010
  Serious: Yes (Death)
  Sender: FDA-Public Use
  Company Number: CH-ALEXION-A201100828

PATIENT
  Sex: Male

DRUGS (7)
  1. CLONIDINE HCL [Concomitant]
     Indication: SEDATION
     Dosage: 2 DAYS
     Route: 042
  2. MORPHINE [Concomitant]
     Indication: PAIN
     Dosage: INTERMITTENT
     Route: 042
  3. SOLIRIS [Suspect]
     Indication: MALIGNANT ATROPHIC PAPULOSIS
     Dosage: 900 MG, QW
     Route: 042
     Dates: start: 20110325, end: 20110416
  4. TIENAM [Concomitant]
     Indication: INTESTINAL PERFORATION
     Dosage: 2 DAYS
     Route: 042
  5. PANTOPRAZOLE [Concomitant]
     Indication: GASTRITIS PROPHYLAXIS
     Route: 042
  6. SOLIRIS [Suspect]
     Dosage: 1200 MG, Q2W
     Route: 042
     Dates: start: 20110421, end: 20110512
  7. PROPOFOL [Concomitant]
     Indication: SEDATION
     Dosage: INTERMITTENT
     Route: 042

REACTIONS (2)
  - INTESTINAL PERFORATION [None]
  - GASTROINTESTINAL HAEMORRHAGE [None]
